FAERS Safety Report 16070615 (Version 1)
Quarter: 2019Q1

REPORT INFORMATION
  Report Type: Spontaneous
  Country: US (occurrence: US)
  Receive Date: 20190313
  Receipt Date: 20190313
  Transmission Date: 20190418
  Serious: No
  Sender: FDA-Public Use
  Company Number: None

PATIENT
  Age: 58 Year
  Sex: Female
  Weight: 81 kg

DRUGS (1)
  1. OXYCODONE W/APPS 10/325 TAB SUBSTITUTE FOR PERCOCET [Suspect]
     Active Substance: ACETAMINOPHEN\OXYCODONE HYDROCHLORIDE
     Indication: PAIN
     Dosage: ?          QUANTITY:1 TABLET(S);OTHER FREQUENCY:OTHER;?
     Route: 048
     Dates: start: 20190312

REACTIONS (2)
  - Inadequate analgesia [None]
  - Product substitution issue [None]

NARRATIVE: CASE EVENT DATE: 20190312
